FAERS Safety Report 23796334 (Version 3)
Quarter: 2024Q4

REPORT INFORMATION
  Report Type: Spontaneous
  Country: JP (occurrence: JP)
  Receive Date: 20240430
  Receipt Date: 20241031
  Transmission Date: 20250114
  Serious: Yes (Death, Other)
  Sender: AMGEN
  Company Number: JP-TAKEDA-2024TJP006086

PATIENT
  Age: 73 Year
  Sex: Male
  Weight: 61.5 kg

DRUGS (4)
  1. VECTIBIX [Suspect]
     Active Substance: PANITUMUMAB
     Indication: Rectal cancer
     Dosage: UNK
     Route: 041
     Dates: start: 20230403
  2. MORPHINE HYDROCHLORIDE [Suspect]
     Active Substance: MORPHINE HYDROCHLORIDE
     Indication: Dyspnoea
     Dosage: UNK
     Route: 065
     Dates: start: 20240410
  3. OXALIPLATIN [Concomitant]
     Active Substance: OXALIPLATIN
     Indication: Rectal cancer
     Dosage: UNK UNK, Q3WEEKS
     Route: 041
     Dates: start: 20230313
  4. GIMERACIL\OTERACIL\TEGAFUR [Concomitant]
     Active Substance: GIMERACIL\OTERACIL POTASSIUM\TEGAFUR
     Indication: Rectal cancer
     Dosage: 40 MILLIGRAM, BID
     Route: 048
     Dates: start: 20230313

REACTIONS (4)
  - Interstitial lung disease [Fatal]
  - Product use issue [Unknown]
  - Contraindicated product administered [Unknown]
  - Labelled drug-disease interaction medication error [Unknown]

NARRATIVE: CASE EVENT DATE: 20230403
